FAERS Safety Report 8320315-4 (Version None)
Quarter: 2012Q2

REPORT INFORMATION
  Report Type: 
  Country: None (occurrence: None)
  Receive Date: 20120430
  Receipt Date: 20120424
  Transmission Date: 20120825
  Serious: No
  Sender: FDA-Public Use
  Company Number: US-PFIZER INC-2012087539

PATIENT
  Sex: Male

DRUGS (1)
  1. SOMAVERT [Suspect]
     Dosage: UNK
     Dates: end: 20120401

REACTIONS (4)
  - ABDOMINAL DISTENSION [None]
  - URTICARIA [None]
  - OROPHARYNGEAL PAIN [None]
  - BACK PAIN [None]
